FAERS Safety Report 8162695-9 (Version None)
Quarter: 2012Q1

REPORT INFORMATION
  Report Type: 
  Country: None (occurrence: None)
  Receive Date: 20120224
  Receipt Date: 20120217
  Transmission Date: 20120608
  Serious: Yes (Other)
  Sender: FDA-Public Use
  Company Number: US-SHIRE-ALL1-2012-00983

PATIENT
  Age: 7 Year
  Sex: Male

DRUGS (4)
  1. INTUNIV [Suspect]
     Dosage: 1 MG, 1X/DAY:QD
     Route: 048
     Dates: start: 20100501, end: 20110101
  2. INTUNIV [Suspect]
     Indication: IMPULSIVE BEHAVIOUR
     Dosage: 2 MG, 1X/DAY:QD
     Route: 048
     Dates: start: 20110101, end: 20110101
  3. INTUNIV [Suspect]
     Dosage: 1 MG, 1X/DAY:QD
     Route: 048
     Dates: start: 20110101
  4. METADATE CD [Concomitant]
     Indication: PSYCHOMOTOR HYPERACTIVITY
     Dosage: 20 MG, 2X/DAY:BID
     Route: 048
     Dates: start: 20090101

REACTIONS (7)
  - PERSONALITY CHANGE [None]
  - FATIGUE [None]
  - OFF LABEL USE [None]
  - SUICIDAL IDEATION [None]
  - TENSION [None]
  - ANGER [None]
  - INCORRECT DOSE ADMINISTERED [None]
